FAERS Safety Report 9807035 (Version 1)
Quarter: 2014Q1

REPORT INFORMATION
  Report Type: Spontaneous
  Country: ES (occurrence: ES)
  Receive Date: 20140110
  Receipt Date: 20140110
  Transmission Date: 20141002
  Serious: Yes (Other)
  Sender: FDA-Public Use
  Company Number: ES-MERCK-1401ESP002954

PATIENT
  Age: 5 Year
  Sex: Male
  Weight: 21 kg

DRUGS (2)
  1. SINGULAIR 4 MG COMPRIMIDOS MASTICABLES [Suspect]
     Route: 048
     Dates: start: 20110606, end: 20130902
  2. MOMETASONE FUROATE [Concomitant]
     Dosage: 0.1 MG, BID
     Route: 055
     Dates: start: 20130604

REACTIONS (2)
  - Panic reaction [Recovered/Resolved]
  - Hallucination [Recovered/Resolved]
